FAERS Safety Report 9470754 (Version 1)
Quarter: 2013Q3

REPORT INFORMATION
  Report Type: Spontaneous
  Country: US (occurrence: US)
  Receive Date: 20130822
  Receipt Date: 20130822
  Transmission Date: 20140515
  Serious: No
  Sender: FDA-Public Use
  Company Number: US-SANOFI-AVENTIS-2013SA069378

PATIENT
  Age: 59 Year
  Sex: Female

DRUGS (6)
  1. ZALTRAP [Suspect]
     Route: 065
     Dates: start: 20130703
  2. CAMPTOSAR [Concomitant]
  3. LEUCOVORIN [Concomitant]
  4. DIPHENHYDRAMINE HYDROCHLORIDE [Concomitant]
     Route: 042
  5. HYDROCORTISONE [Concomitant]
     Route: 042
  6. NORMAL SALINE [Concomitant]
     Dosage: DOSE:500 CC
     Route: 065

REACTIONS (4)
  - Chills [Unknown]
  - Tremor [Unknown]
  - Feeling cold [Unknown]
  - Blood pressure increased [Unknown]
